FAERS Safety Report 12056765 (Version 1)
Quarter: 2016Q1

REPORT INFORMATION
  Report Type: Spontaneous
  Country: US (occurrence: US)
  Receive Date: 20160209
  Receipt Date: 20160209
  Transmission Date: 20160526
  Serious: No
  Sender: FDA-Public Use
  Company Number: US-TAKEDA-2016MPI000532

PATIENT
  Sex: Male
  Weight: 57 kg

DRUGS (3)
  1. REVLIMID [Concomitant]
     Active Substance: LENALIDOMIDE
     Dosage: UNK
     Dates: start: 20150918
  2. DECADRON [Concomitant]
     Active Substance: DEXAMETHASONE
  3. VELCADE [Suspect]
     Active Substance: BORTEZOMIB
     Indication: PLASMA CELL MYELOMA
     Dosage: 2.5 MG, UNK
     Route: 058
     Dates: start: 20150825

REACTIONS (4)
  - Balance disorder [Unknown]
  - Weight decreased [Unknown]
  - Hypoaesthesia [Unknown]
  - Decreased appetite [Unknown]
